FAERS Safety Report 8025196-4 (Version None)
Quarter: 2012Q1

REPORT INFORMATION
  Report Type: 
  Country: None (occurrence: None)
  Receive Date: 20120105
  Receipt Date: 20111226
  Transmission Date: 20120608
  Serious: Yes (Disabling)
  Sender: FDA-Public Use
  Company Number: JP-GLAXOSMITHKLINE-B0766955A

PATIENT
  Sex: Male

DRUGS (10)
  1. ABILIFY [Suspect]
     Indication: DEPRESSION
     Dosage: 6MG PER DAY
     Route: 048
     Dates: start: 20110720, end: 20111121
  2. DEPAKENE [Suspect]
     Indication: DEPRESSION
     Dosage: 1200MG PER DAY
     Route: 048
     Dates: start: 20110720, end: 20111121
  3. HALCION [Suspect]
     Indication: DEPRESSION
     Dosage: .25MG PER DAY
     Route: 048
     Dates: start: 20110720, end: 20111121
  4. LAMICTAL [Suspect]
     Indication: BIPOLAR DISORDER
     Dosage: 25MG ALTERNATE DAYS
     Route: 048
     Dates: start: 20111012, end: 20111024
  5. LAMICTAL [Suspect]
     Dosage: 25MG PER DAY
     Route: 048
     Dates: start: 20111025, end: 20111112
  6. FLUVOXAMINE MALEATE [Suspect]
     Indication: DEPRESSION
     Dosage: 225MG PER DAY
     Route: 048
     Dates: start: 20110720
  7. TETRAMIDE [Suspect]
     Indication: DEPRESSION
     Dosage: 20MG PER DAY
     Route: 048
     Dates: start: 20110720, end: 20111121
  8. LENDORMIN [Suspect]
     Indication: DEPRESSION
     Dosage: .25MG PER DAY
     Route: 048
     Dates: start: 20110720, end: 20111121
  9. AKINETON [Suspect]
     Indication: DEPRESSION
     Dosage: 3MG PER DAY
     Route: 065
     Dates: start: 20110720, end: 20111121
  10. ROHYPNOL [Suspect]
     Indication: DEPRESSION
     Dosage: 2MG PER DAY
     Route: 065
     Dates: start: 20110720, end: 20111121

REACTIONS (18)
  - ERYTHEMA [None]
  - RASH PAPULAR [None]
  - ACUTE GENERALISED EXANTHEMATOUS PUSTULOSIS [None]
  - DERMATITIS EXFOLIATIVE [None]
  - PYREXIA [None]
  - ALANINE AMINOTRANSFERASE INCREASED [None]
  - PRURITUS [None]
  - DRUG ERUPTION [None]
  - RASH [None]
  - LYMPHADENOPATHY [None]
  - SWELLING FACE [None]
  - BLOOD LACTATE DEHYDROGENASE INCREASED [None]
  - WHITE BLOOD CELL COUNT INCREASED [None]
  - EOSINOPHIL COUNT INCREASED [None]
  - RASH PUSTULAR [None]
  - C-REACTIVE PROTEIN INCREASED [None]
  - GAMMA-GLUTAMYLTRANSFERASE INCREASED [None]
  - DERMATITIS ACNEIFORM [None]
